FAERS Safety Report 5736825-X (Version None)
Quarter: 2008Q2

REPORT INFORMATION
  Report Type: 
  Country: None (occurrence: None)
  Receive Date: 20080508
  Receipt Date: 20080422
  Transmission Date: 20081010
  Serious: Yes (Hospitalization)
  Sender: FDA-Public Use
  Company Number: DSA_31641_2008

PATIENT
  Age: 71 Year
  Sex: Female

DRUGS (5)
  1. ENALAPRIL MALEATE AND HYDROCHLOROTHIAZIDE [Suspect]
     Indication: HYPERTENSION
     Dosage: (1 DF QD 20-12.5 MG DAILY ORAL)
     Route: 048
  2. RIBAVIRIN [Suspect]
     Indication: HEPATITIS C
     Dosage: (DF ORAL)
     Route: 048
     Dates: start: 20071015, end: 20080129
  3. PEGINTERFERON ALFA-2B      (PEGINTERFERON ALFA-2B) [Suspect]
     Indication: HEPATITIS C
     Dosage: (0.5 ML 1X/WEEK SUBCUTANEOUS)
     Route: 058
     Dates: start: 20071015, end: 20080129
  4. SULFAMETHOXAZOLE AND TRIMETHOPRIM [Suspect]
     Indication: URINARY TRACT INFECTION
     Dosage: (DF ORAL)
     Route: 048
     Dates: start: 20080207, end: 20080211
  5. LEVOTHYROXINE SODIUM [Concomitant]

REACTIONS (6)
  - APLASIA PURE RED CELL [None]
  - BLOOD THYROID STIMULATING HORMONE INCREASED [None]
  - DISEASE RECURRENCE [None]
  - DYSPNOEA [None]
  - HAEMOLYTIC ANAEMIA [None]
  - URINARY TRACT INFECTION [None]
